FAERS Safety Report 5560784-6 (Version None)
Quarter: 2007Q4

REPORT INFORMATION
  Report Type: 
  Country: None (occurrence: None)
  Receive Date: 20071215
  Receipt Date: 20071121
  Transmission Date: 20080405
  Serious: Yes (Hospitalization)
  Sender: FDA-Public Use
  Company Number: US-ABBOTT-07P-163-0425659-00

PATIENT
  Sex: Female

DRUGS (5)
  1. HUMIRA [Suspect]
     Indication: CROHN'S DISEASE
     Route: 058
     Dates: end: 20071116
  2. HUMIRA [Suspect]
     Route: 058
     Dates: start: 20071005, end: 20071005
  3. BALSALAZIDE DISODIUM [Concomitant]
     Indication: DRUG USE FOR UNKNOWN INDICATION
  4. METRONIDAZOLE HCL [Concomitant]
     Indication: DRUG USE FOR UNKNOWN INDICATION
  5. PREDNISONE [Concomitant]
     Indication: DRUG USE FOR UNKNOWN INDICATION

REACTIONS (5)
  - ABDOMINAL PAIN [None]
  - ARTHRALGIA [None]
  - INTESTINAL ULCER [None]
  - PYREXIA [None]
  - VOMITING [None]
